FAERS Safety Report 17218755 (Version 2)
Quarter: 2020Q1

REPORT INFORMATION
  Report Type: Spontaneous
  Country: US (occurrence: US)
  Receive Date: 20191231
  Receipt Date: 20200203
  Transmission Date: 20200409
  Serious: No
  Sender: FDA-Public Use
  Company Number: US-VERTEX PHARMACEUTICALS-2019-013498

PATIENT
  Age: 33 Year
  Sex: Female
  Weight: 55 kg

DRUGS (3)
  1. LISINOPRIL. [Suspect]
     Active Substance: LISINOPRIL
     Indication: PRODUCT USED FOR UNKNOWN INDICATION
     Route: 065
  2. SYMDEKO [Suspect]
     Active Substance: IVACAFTOR\TEZACAFTOR
     Indication: CYSTIC FIBROSIS
     Dosage: 100 MG ELEXACAFTOR/ 50 MG TEZACAFTOR/ 75 MG IVACAFTOR (2 TABS IN AM); 150MG IVACAFTOR (1 TAB IN PM)
     Route: 048
     Dates: start: 20180427
  3. SYMDEKO [Suspect]
     Active Substance: IVACAFTOR\TEZACAFTOR
     Dosage: 100MG TEZACAFTOR/150MG IVACAFTOR; 150MG IVACAFTOR (MONDAY AND THURSDAY AM)
     Route: 048
     Dates: start: 201804

REACTIONS (3)
  - Insomnia [Unknown]
  - Hypotension [Unknown]
  - Malaise [Unknown]

NARRATIVE: CASE EVENT DATE: 20200124
